FAERS Safety Report 7968308-0 (Version None)
Quarter: 2011Q4

REPORT INFORMATION
  Report Type: 
  Country: None (occurrence: None)
  Receive Date: 20111209
  Receipt Date: 20111207
  Transmission Date: 20120403
  Serious: Yes (Death, Other)
  Sender: FDA-Public Use
  Company Number: PHHY2010CA74075

PATIENT
  Sex: Female
  Weight: 53 kg

DRUGS (3)
  1. ZOLEDRONOC ACID [Suspect]
     Indication: OSTEOPOROSIS
     Dosage: 5 MG, UNK
     Route: 042
     Dates: start: 20091101
  2. VITAMIN D [Concomitant]
     Dosage: 400 MG, BID
     Dates: start: 19901001
  3. CALCIUM [Concomitant]
     Dosage: 500 MG, BID
     Dates: start: 19901001

REACTIONS (2)
  - RENAL FAILURE CHRONIC [None]
  - DEATH [None]
